FAERS Safety Report 8462372-0 (Version None)
Quarter: 2012Q2

REPORT INFORMATION
  Report Type: 
  Country: None (occurrence: None)
  Receive Date: 20120625
  Receipt Date: 20120612
  Transmission Date: 20120825
  Serious: Yes (Hospitalization)
  Sender: FDA-Public Use
  Company Number: FR-PFIZER INC-2012149684

PATIENT
  Age: 40 Year
  Sex: Male

DRUGS (1)
  1. MORPHINE SULFATE [Suspect]
     Indication: PAIN
     Dosage: 30 MG, DAILY
     Route: 048
     Dates: start: 20080101

REACTIONS (2)
  - OFF LABEL USE [None]
  - DRUG DEPENDENCE [None]
